FAERS Safety Report 22129682 (Version 3)
Quarter: 2023Q2

REPORT INFORMATION
  Report Type: Spontaneous
  Country: BE (occurrence: BE)
  Receive Date: 20230323
  Receipt Date: 20230512
  Transmission Date: 20230721
  Serious: Yes (Hospitalization, Other)
  Sender: FDA-Public Use
  Company Number: BE-009507513-2303BEL006926

PATIENT
  Age: 50 Year
  Sex: Female

DRUGS (1)
  1. PEMBROLIZUMAB [Suspect]
     Active Substance: PEMBROLIZUMAB
     Indication: Metastatic malignant melanoma
     Dosage: THREE-WEEKLY 200 MG
     Dates: start: 201811, end: 201906

REACTIONS (1)
  - Autoimmune pericarditis [Recovering/Resolving]

NARRATIVE: CASE EVENT DATE: 20181201
